FAERS Safety Report 13341981 (Version 2)
Quarter: 2017Q1

REPORT INFORMATION
  Report Type: Other
  Country: FI (occurrence: FI)
  Receive Date: 20170316
  Receipt Date: 20170328
  Transmission Date: 20170428
  Serious: Yes (Hospitalization)
  Sender: FDA-Public Use
  Company Number: FI-CELLTRION INC.-2017FI003159

PATIENT

DRUGS (6)
  1. INFLECTRA [Suspect]
     Active Substance: INFLIXIMAB-DYYB
     Dosage: 300 MG, UNK
     Route: 042
     Dates: start: 20170103, end: 20170103
  2. PREDNISOLON [Concomitant]
     Active Substance: PREDNISOLONE
     Dosage: 20 G, 1X/DAY
  3. COLIFOAM [Concomitant]
     Active Substance: HYDROCORTISONE
     Dosage: UNK UNK, AS NEEDED
  4. ASACOL [Concomitant]
     Active Substance: MESALAMINE
     Dosage: 2400 MG, BID (2X/DAY)
  5. INFLECTRA [Suspect]
     Active Substance: INFLIXIMAB-DYYB
     Indication: COLITIS ULCERATIVE
     Dosage: 300 MG, UNK
     Route: 042
     Dates: start: 20161219, end: 20161219
  6. CIPRALEX [Concomitant]
     Active Substance: ESCITALOPRAM OXALATE
     Dosage: 10 MG, 1X/DAY

REACTIONS (4)
  - Pyrexia [Recovered/Resolved]
  - Rash macular [Recovered/Resolved]
  - Salivary gland enlargement [Recovered/Resolved]
  - Rash pustular [Recovered/Resolved]

NARRATIVE: CASE EVENT DATE: 20161219
